FAERS Safety Report 8048664-8 (Version None)
Quarter: 2012Q1

REPORT INFORMATION
  Report Type: 
  Country: None (occurrence: None)
  Receive Date: 20120117
  Receipt Date: 20120109
  Transmission Date: 20120608
  Serious: Yes (Hospitalization, Other)
  Sender: FDA-Public Use
  Company Number: US-BAYER-2010-002286

PATIENT
  Age: 25 Year
  Sex: Female
  Weight: 49.887 kg

DRUGS (1)
  1. YASMIN [Suspect]
     Indication: PREMENSTRUAL SYNDROME
     Dosage: UNK
     Route: 048
     Dates: start: 20050401, end: 20080101

REACTIONS (2)
  - ARRHYTHMIA [None]
  - THROMBOSIS [None]
